FAERS Safety Report 20737461 (Version 4)
Quarter: 2022Q3

REPORT INFORMATION
  Report Type: Report from Study
  Country: NL (occurrence: NL)
  Receive Date: 20220421
  Receipt Date: 20220814
  Transmission Date: 20221027
  Serious: Yes (Hospitalization, Other)
  Sender: FDA-Public Use
  Company Number: NL-ABBVIE-21K-114-4116238-00

PATIENT
  Sex: Male

DRUGS (2)
  1. CARBIDOPA\LEVODOPA [Suspect]
     Active Substance: CARBIDOPA\LEVODOPA
     Indication: Parkinson^s disease
     Dosage: MD: 4.5 ML, CD: 3.1 ML/H, ED: 3.0 ML, END: 3.0 ML, CND: 2.1 ML/H
     Route: 050
  2. CARBIDOPA\LEVODOPA [Suspect]
     Active Substance: CARBIDOPA\LEVODOPA
     Dosage: MD 4.5 ML CD 3.1 ML/H ED 3.0 ML ND 0.0 ML CND 2.1 ML/H END 3.0?ML
     Route: 050

REACTIONS (23)
  - Hypertension [Unknown]
  - Loss of consciousness [Recovered/Resolved]
  - Walking aid user [Not Recovered/Not Resolved]
  - Bradyphrenia [Not Recovered/Not Resolved]
  - Device breakage [Recovered/Resolved]
  - Speech disorder [Unknown]
  - COVID-19 [Recovered/Resolved]
  - Illness [Unknown]
  - Muscle rigidity [Unknown]
  - Tremor [Unknown]
  - Weight decreased [Recovered/Resolved]
  - Gait disturbance [Not Recovered/Not Resolved]
  - Dry mouth [Not Recovered/Not Resolved]
  - Unevaluable event [Unknown]
  - Hypotension [Unknown]
  - Dystonia [Not Recovered/Not Resolved]
  - Dyskinesia [Recovering/Resolving]
  - Therapeutic product effect incomplete [Recovered/Resolved]
  - General physical health deterioration [Not Recovered/Not Resolved]
  - Stoma site irritation [Not Recovered/Not Resolved]
  - Stoma site erythema [Not Recovered/Not Resolved]
  - Stoma site discharge [Not Recovered/Not Resolved]
  - Fibroma [Unknown]

NARRATIVE: CASE EVENT DATE: 20210101
